FAERS Safety Report 6848742-2 (Version None)
Quarter: 2010Q3

REPORT INFORMATION
  Report Type: 
  Country: None (occurrence: None)
  Receive Date: 20100716
  Receipt Date: 20100705
  Transmission Date: 20110219
  Serious: Yes (Death, Other)
  Sender: FDA-Public Use
  Company Number: IE-MEDIMMUNE-MEDI-0010377

PATIENT
  Sex: Male

DRUGS (4)
  1. SYNAGIS [Suspect]
     Route: 030
     Dates: start: 20091125, end: 20100112
  2. CAPTOPRIL [Concomitant]
     Route: 048
  3. FUROSEMIDE [Concomitant]
     Route: 048
  4. SPIRONOLACTONE [Concomitant]
     Route: 048

REACTIONS (2)
  - CARDIAC ARREST [None]
  - ILL-DEFINED DISORDER [None]
